FAERS Safety Report 6508563-7 (Version None)
Quarter: 2009Q4

REPORT INFORMATION
  Report Type: 
  Country: None (occurrence: None)
  Receive Date: 20091221
  Receipt Date: 20091208
  Transmission Date: 20100525
  Serious: No
  Sender: FDA-Public Use
  Company Number: US-ELI_LILLY_AND_COMPANY-US200912002097

PATIENT
  Sex: Female
  Weight: 54.422 kg

DRUGS (2)
  1. ADCIRCA [Suspect]
     Indication: LUNG DISORDER
     Dosage: 40 MG, DAILY (1/D)
     Route: 048
     Dates: start: 20091207
  2. REVATIO [Concomitant]
     Dosage: UNK, UNK
     Dates: end: 20091206

REACTIONS (2)
  - COLOUR BLINDNESS ACQUIRED [None]
  - PAIN IN EXTREMITY [None]
